FAERS Safety Report 15925985 (Version 1)
Quarter: 2019Q1

REPORT INFORMATION
  Report Type: Spontaneous
  Country: US (occurrence: US)
  Receive Date: 20190206
  Receipt Date: 20190206
  Transmission Date: 20190417
  Serious: No
  Sender: FDA-Public Use
  Company Number: None

PATIENT
  Age: 35 Year
  Sex: Female
  Weight: 84.99 kg

DRUGS (1)
  1. BUPRENORPHINE/NALTREXONE 8MG [Suspect]
     Active Substance: BUPRENORPHINE\NALOXONE
     Indication: DRUG DEPENDENCE
     Route: 060

REACTIONS (3)
  - Product substitution issue [None]
  - Product taste abnormal [None]
  - Tongue discomfort [None]

NARRATIVE: CASE EVENT DATE: 20190205
